FAERS Safety Report 11064545 (Version 1)
Quarter: 2015Q2

REPORT INFORMATION
  Report Type: Spontaneous
  Country: US (occurrence: US)
  Receive Date: 20150424
  Receipt Date: 20150424
  Transmission Date: 20150821
  Serious: No
  Sender: FDA-Public Use
  Company Number: US-PFIZER INC-2015135135

PATIENT
  Age: 44 Year
  Sex: Female
  Weight: 82 kg

DRUGS (4)
  1. ADVIL [Suspect]
     Active Substance: IBUPROFEN
     Indication: NECK PAIN
  2. ADVIL [Suspect]
     Active Substance: IBUPROFEN
     Indication: HEADACHE
  3. NODOZ [Suspect]
     Active Substance: CAFFEINE
     Indication: SOMNOLENCE
     Dosage: 200 MG, UNK
     Route: 048
  4. ADVIL [Suspect]
     Active Substance: IBUPROFEN
     Indication: MUSCULOSKELETAL STIFFNESS
     Dosage: 400 MG, UNK
     Route: 048
     Dates: end: 20150413

REACTIONS (4)
  - Hypoaesthesia oral [Recovered/Resolved]
  - Intentional product misuse [Unknown]
  - Expired product administered [Unknown]
  - Dizziness [Recovered/Resolved]
